FAERS Safety Report 15924075 (Version 2)
Quarter: 2019Q1

REPORT INFORMATION
  Report Type: Spontaneous
  Country: US (occurrence: US)
  Receive Date: 20190205
  Receipt Date: 20190219
  Transmission Date: 20190417
  Serious: No
  Sender: FDA-Public Use
  Company Number: US-ALLERGAN-1819330US

PATIENT
  Sex: Female

DRUGS (2)
  1. COUMADIN [Concomitant]
     Active Substance: WARFARIN SODIUM
     Indication: PRODUCT USED FOR UNKNOWN INDICATION
     Dosage: UNK
  2. BOTOX [Suspect]
     Active Substance: ONABOTULINUMTOXINA
     Indication: MIGRAINE
     Dosage: UNK, SINGLE
     Route: 030
     Dates: start: 20180328, end: 20180328

REACTIONS (10)
  - Contusion [Unknown]
  - Eyelid ptosis [Unknown]
  - Injection site erythema [Unknown]
  - Pyrexia [Recovering/Resolving]
  - Injection site swelling [Unknown]
  - Eye swelling [Unknown]
  - Injection site pruritus [Unknown]
  - Hypersomnia [Unknown]
  - Facial pain [Unknown]
  - Therapeutic response decreased [Unknown]

NARRATIVE: CASE EVENT DATE: 20180329
